FAERS Safety Report 14672717 (Version 4)
Quarter: 2020Q3

REPORT INFORMATION
  Report Type: Spontaneous
  Country: DK (occurrence: DK)
  Receive Date: 20180323
  Receipt Date: 20200806
  Transmission Date: 20201102
  Serious: Yes (Other)
  Sender: FDA-Public Use
  Company Number: DK-ROCHE-2093529

PATIENT
  Age: 61 Year
  Sex: Female

DRUGS (1)
  1. MABTHERA [Suspect]
     Active Substance: RITUXIMAB
     Indication: RHEUMATOID ARTHRITIS
     Route: 042
     Dates: start: 20150602, end: 20170727

REACTIONS (4)
  - Tinnitus [Unknown]
  - Hypoacusis [Unknown]
  - Glaucoma [Not Recovered/Not Resolved]
  - Visual impairment [Unknown]
